FAERS Safety Report 19706893 (Version 1)
Quarter: 2021Q3

REPORT INFORMATION
  Report Type: Spontaneous
  Country: US (occurrence: US)
  Receive Date: 20210816
  Receipt Date: 20210816
  Transmission Date: 20211014
  Serious: Yes (Disabling)
  Sender: FDA-Public Use
  Company Number: None

PATIENT
  Age: 57 Year
  Sex: Male
  Weight: 90 kg

DRUGS (8)
  1. TOPAMAX [Concomitant]
     Active Substance: TOPIRAMATE
  2. LAMICTAL [Concomitant]
     Active Substance: LAMOTRIGINE
  3. NADOLOL. [Concomitant]
     Active Substance: NADOLOL
  4. QUINAPRIL. [Concomitant]
     Active Substance: QUINAPRIL
  5. WELLBUTRIN [Concomitant]
     Active Substance: BUPROPION HYDROCHLORIDE
  6. EMGALITY [Suspect]
     Active Substance: GALCANEZUMAB-GNLM
     Indication: MIGRAINE
     Dosage: ?          OTHER FREQUENCY:ONCE PER MONTH;OTHER ROUTE:INJECTION?
     Dates: start: 20210729
  7. ROSUVASTATIN. [Concomitant]
     Active Substance: ROSUVASTATIN
  8. TRINTELLIX [Concomitant]
     Active Substance: VORTIOXETINE HYDROBROMIDE

REACTIONS (2)
  - Drug ineffective [None]
  - Migraine [None]

NARRATIVE: CASE EVENT DATE: 20210816
